FAERS Safety Report 11245439 (Version 1)
Quarter: 2015Q3

REPORT INFORMATION
  Report Type: Spontaneous
  Country: ES (occurrence: ES)
  Receive Date: 20150707
  Receipt Date: 20150707
  Transmission Date: 20151125
  Serious: Yes (Hospitalization, Other)
  Sender: FDA-Public Use
  Company Number: ES-ABBVIE-15P-144-1417561-00

PATIENT
  Age: 82 Year
  Sex: Male

DRUGS (3)
  1. EXVIERA [Suspect]
     Active Substance: DASABUVIR
     Indication: HEPATITIS C
     Route: 048
     Dates: start: 20150522, end: 20150608
  2. VIEKIRAX [Suspect]
     Active Substance: OMBITASVIR\PARITAPREVIR\RITONAVIR
     Indication: PRODUCT USED FOR UNKNOWN INDICATION
     Route: 048
     Dates: start: 20150522, end: 20150608
  3. RIBAVIRIN. [Suspect]
     Active Substance: RIBAVIRIN
     Indication: HEPATITIS C
     Dosage: 2-0-3
     Route: 048
     Dates: start: 20150522, end: 20150608

REACTIONS (12)
  - Seizure [Recovered/Resolved]
  - Amylase increased [Recovered/Resolved]
  - Hiatus hernia [Unknown]
  - Vomiting [Recovered/Resolved]
  - Asthenia [Unknown]
  - Alopecia [Unknown]
  - Nausea [Recovered/Resolved]
  - Blood urea increased [Recovered/Resolved]
  - Acquired oesophageal web [Unknown]
  - Gastric mucosal lesion [Unknown]
  - Gastrooesophageal reflux disease [Unknown]
  - Duodenal ulcer [Unknown]

NARRATIVE: CASE EVENT DATE: 201505
